FAERS Safety Report 7068036-2 (Version None)
Quarter: 2010Q4

REPORT INFORMATION
  Report Type: 
  Country: None (occurrence: None)
  Receive Date: 20101020
  Receipt Date: 20101006
  Transmission Date: 20110411
  Serious: Yes (Other)
  Sender: FDA-Public Use
  Company Number: 2010MA003359

PATIENT
  Age: 60 Year
  Sex: Female

DRUGS (1)
  1. TRIAMCINOLONE ACETONIDE [Suspect]
     Indication: VITRECTOMY
     Dosage: 40 MG; X1; IO
     Route: 031

REACTIONS (5)
  - CORNEAL DEPOSITS [None]
  - CORNEAL DISORDER [None]
  - CORNEAL OEDEMA [None]
  - MACULAR HOLE [None]
  - VISUAL ACUITY REDUCED [None]
